FAERS Safety Report 7400471-2 (Version None)
Quarter: 2011Q2

REPORT INFORMATION
  Report Type: 
  Country: None (occurrence: None)
  Receive Date: 20110407
  Receipt Date: 20110401
  Transmission Date: 20111010
  Serious: Yes (Other)
  Sender: FDA-Public Use
  Company Number: US-JNJFOC-20110300193

PATIENT
  Sex: Female
  Weight: 63.96 kg

DRUGS (2)
  1. NUCYNTA [Suspect]
     Indication: ANALGESIC THERAPY
     Dosage: TOOK ONE TABLET AND THEN WAITED 1 HOUR AND TOOK A SECOND TABLET
     Route: 048
  2. XANAX [Concomitant]
     Indication: PANIC ATTACK
     Route: 065

REACTIONS (6)
  - DEPRESSION [None]
  - EUPHORIC MOOD [None]
  - DELUSION [None]
  - FEELING ABNORMAL [None]
  - DISTURBANCE IN SOCIAL BEHAVIOUR [None]
  - TREMOR [None]
